FAERS Safety Report 10033024 (Version 1)
Quarter: 2014Q1

REPORT INFORMATION
  Report Type: Spontaneous
  Country: US (occurrence: US)
  Receive Date: 20140324
  Receipt Date: 20140324
  Transmission Date: 20141002
  Serious: Yes (Hospitalization)
  Sender: FDA-Public Use
  Company Number: US-PFIZER INC-2014079849

PATIENT
  Age: 84 Year
  Sex: Female
  Weight: 81.63 kg

DRUGS (2)
  1. DETROL LA [Suspect]
     Dosage: 4 MG, 1X/DAY
     Route: 048
  2. DETROL LA [Suspect]
     Dosage: 4 MG, 1X/DAY
     Route: 048
     Dates: start: 20131218

REACTIONS (1)
  - Blood pressure increased [Unknown]
